FAERS Safety Report 24849557 (Version 2)
Quarter: 2025Q1

REPORT INFORMATION
  Report Type: Spontaneous
  Country: US (occurrence: US)
  Receive Date: 20250116
  Receipt Date: 20250128
  Transmission Date: 20250409
  Serious: Yes (Hospitalization, Other)
  Sender: TEVA
  Company Number: US-TEVA-VS-3284290

PATIENT
  Age: 78 Year
  Sex: Female

DRUGS (5)
  1. PREDNISONE [Suspect]
     Active Substance: PREDNISONE
     Indication: Immune-mediated enterocolitis
     Route: 065
  2. ATROPINE\DIPHENOXYLATE [Suspect]
     Active Substance: ATROPINE\DIPHENOXYLATE
     Indication: Diarrhoea
     Route: 065
  3. IPILIMUMAB [Suspect]
     Active Substance: IPILIMUMAB
     Indication: Mesothelioma
     Route: 065
  4. VEDOLIZUMAB [Suspect]
     Active Substance: VEDOLIZUMAB
     Indication: Diarrhoea
     Route: 065
  5. NIVOLUMAB [Suspect]
     Active Substance: NIVOLUMAB
     Indication: Mesothelioma
     Route: 065

REACTIONS (7)
  - Diarrhoea [Recovered/Resolved]
  - Drug ineffective [Unknown]
  - Immune-mediated mucositis [Recovering/Resolving]
  - Immune-mediated lung disease [Recovering/Resolving]
  - Skin toxicity [Unknown]
  - Immune-mediated vasculitis [Not Recovered/Not Resolved]
  - Immune-mediated enterocolitis [Recovered/Resolved]
